FAERS Safety Report 5410353-3 (Version None)
Quarter: 2007Q3

REPORT INFORMATION
  Report Type: 
  Country: None (occurrence: None)
  Receive Date: 20070808
  Receipt Date: 20070726
  Transmission Date: 20080115
  Serious: Yes (Other)
  Sender: FDA-Public Use
  Company Number: FABR-12093

PATIENT
  Age: 27 Year
  Sex: Male
  Weight: 69.9 kg

DRUGS (1)
  1. FABRAZYME [Suspect]
     Indication: FABRY'S DISEASE
     Dosage: 70 MG Q2WKS IV
     Route: 042
     Dates: start: 20030901

REACTIONS (4)
  - EYELID OEDEMA [None]
  - NAUSEA [None]
  - PARAESTHESIA ORAL [None]
  - RASH ERYTHEMATOUS [None]
